FAERS Safety Report 25590557 (Version 1)
Quarter: 2025Q3

REPORT INFORMATION
  Report Type: Spontaneous
  Country: US (occurrence: US)
  Receive Date: 20250722
  Receipt Date: 20250722
  Transmission Date: 20251021
  Serious: No
  Sender: ALEXION PHARMACEUTICALS
  Company Number: US-AstraZeneca-CH-00911956A

PATIENT
  Sex: Male

DRUGS (1)
  1. STRENSIQ [Suspect]
     Active Substance: ASFOTASE ALFA
     Indication: Hypophosphatasia
     Dosage: 130 MILLIGRAM, TIW
     Dates: start: 2022

REACTIONS (2)
  - Injection site bruising [Not Recovered/Not Resolved]
  - Injection site hypertrophy [Not Recovered/Not Resolved]
